FAERS Safety Report 9437016 (Version 2)
Quarter: 2013Q4

REPORT INFORMATION
  Report Type: Spontaneous
  Country: US (occurrence: US)
  Receive Date: 20130802
  Receipt Date: 20131120
  Transmission Date: 20140711
  Serious: Yes (Other)
  Sender: FDA-Public Use
  Company Number: US-SANOFI-AVENTIS-2013SA077680

PATIENT
  Age: 72 Year
  Sex: Female
  Weight: 72.57 kg

DRUGS (11)
  1. ALLEGRA [Suspect]
     Indication: RHINITIS ALLERGIC
     Route: 048
     Dates: start: 1997, end: 201306
  2. ALLEGRA [Suspect]
     Indication: SINUSITIS
     Route: 048
     Dates: start: 1997, end: 201306
  3. ALLEGRA [Suspect]
     Indication: RHINITIS ALLERGIC
     Route: 048
  4. ALLEGRA [Suspect]
     Indication: SINUSITIS
     Route: 048
  5. VITAMINS [Concomitant]
  6. CENTRUM SILVER [Concomitant]
     Route: 065
  7. CITRACAL [Concomitant]
     Indication: OSTEOPOROSIS
  8. VITAMIN D [Concomitant]
     Route: 065
  9. ASCORBIC ACID/CHONDROITIN SULFATE/GLUCOSAMINE SULFATE/MANGANESE [Concomitant]
     Route: 065
  10. MULTIVITAMINS [Concomitant]
  11. CALCIUM [Concomitant]
     Indication: OSTEOPOROSIS

REACTIONS (2)
  - Nephrolithiasis [Not Recovered/Not Resolved]
  - Urinary tract infection [Recovered/Resolved]
